FAERS Safety Report 9264136 (Version 2)
Quarter: 2013Q3

REPORT INFORMATION
  Report Type: Report from Study
  Country: US (occurrence: US)
  Receive Date: 20130430
  Receipt Date: 20130730
  Transmission Date: 20140515
  Serious: Yes (Hospitalization)
  Sender: FDA-Public Use
  Company Number: US-BRISTOL-MYERS SQUIBB COMPANY-18817452

PATIENT
  Age: 51 Year
  Sex: Female
  Weight: 72 kg

DRUGS (3)
  1. SPRYCEL [Suspect]
     Indication: ACUTE MYELOID LEUKAEMIA
     Dosage: 100MG D 8-21?100MG D 9-22?100MG D 15-28?CYC:28;28FEB13;LASTADMN:5MAR13?TOT DOSE 1700MG
     Route: 048
     Dates: start: 20130106
  2. CYTARABINE [Suspect]
     Indication: ACUTE MYELOID LEUKAEMIA
     Dosage: ROUTE:CIVI;28FEB13;LASTADMN:5MAR13;COURSE:02;CYC:28.?200MG/M2/DAY CIVI D1-7(168HR INF)
     Route: 042
     Dates: start: 20130106
  3. DAUNORUBICIN [Suspect]
     Indication: ACUTE MYELOID LEUKAEMIA
     Dosage: LAST DOSE ON 08-JAN-2013
     Dates: start: 20130106

REACTIONS (13)
  - Haematuria [Not Recovered/Not Resolved]
  - Dehydration [Not Recovered/Not Resolved]
  - Neutrophil count decreased [Not Recovered/Not Resolved]
  - Platelet count decreased [Not Recovered/Not Resolved]
  - White blood cell count decreased [Not Recovered/Not Resolved]
  - Device related infection [Not Recovered/Not Resolved]
  - Pyrexia [Not Recovered/Not Resolved]
  - Nausea [Not Recovered/Not Resolved]
  - Anaemia [Not Recovered/Not Resolved]
  - Febrile neutropenia [Not Recovered/Not Resolved]
  - Enterocolitis infectious [Not Recovered/Not Resolved]
  - Lung infection [Not Recovered/Not Resolved]
  - Urinary tract infection [Not Recovered/Not Resolved]
